FAERS Safety Report 7328961-1 (Version None)
Quarter: 2011Q1

REPORT INFORMATION
  Report Type: 
  Country: None (occurrence: None)
  Receive Date: 20110225
  Receipt Date: 20110225
  Transmission Date: 20110831
  Serious: Yes (Death)
  Sender: FDA-Public Use
  Company Number: None

PATIENT
  Age: 53 Year
  Sex: Male
  Weight: 82.3 kg

DRUGS (1)
  1. AVANDAMET [Suspect]
     Indication: TYPE 2 DIABETES MELLITUS
     Dosage: 2/1000 BID PO 2/09-DATE OF DEATH
     Route: 048
     Dates: start: 20090201

REACTIONS (2)
  - CARDIAC ARREST [None]
  - FALL [None]
